FAERS Safety Report 13073343 (Version 1)
Quarter: 2016Q4

REPORT INFORMATION
  Report Type: Spontaneous
  Country: CN (occurrence: CN)
  Receive Date: 20161229
  Receipt Date: 20161229
  Transmission Date: 20170207
  Serious: Yes (Death)
  Sender: FDA-Public Use
  Company Number: CN-SA-2016SA233677

PATIENT
  Age: 47 Year
  Sex: Male
  Weight: 88 kg

DRUGS (9)
  1. PLAVIX [Suspect]
     Active Substance: CLOPIDOGREL BISULFATE
     Indication: THROMBOLYSIS
     Route: 048
     Dates: start: 20151021, end: 20151021
  2. NITROPRUSSIDE SODIUM [Concomitant]
     Indication: BLOOD PRESSURE ABNORMAL
     Route: 042
     Dates: start: 20151021, end: 20151021
  3. PLAVIX [Suspect]
     Active Substance: CLOPIDOGREL BISULFATE
     Indication: ANTICOAGULANT THERAPY
     Route: 048
     Dates: start: 20151021, end: 20151021
  4. BAYASPIRIN [Concomitant]
     Active Substance: ASPIRIN
     Indication: ANTICOAGULANT THERAPY
     Route: 048
     Dates: start: 20151021, end: 20151021
  5. HEPARIN SODIUM. [Concomitant]
     Active Substance: HEPARIN SODIUM
     Indication: THROMBOLYSIS
     Dosage: DOSE:9000 UNIT(S)
     Dates: start: 20151021, end: 20151021
  6. UROKINASE [Concomitant]
     Active Substance: UROKINASE
  7. BAYASPIRIN [Concomitant]
     Active Substance: ASPIRIN
     Indication: THROMBOLYSIS
     Route: 048
     Dates: start: 20151021, end: 20151021
  8. HEPARIN SODIUM. [Concomitant]
     Active Substance: HEPARIN SODIUM
     Indication: ANTICOAGULANT THERAPY
     Dosage: DOSE:9000 UNIT(S)
     Dates: start: 20151021, end: 20151021
  9. TIROFIBAN [Concomitant]
     Active Substance: TIROFIBAN
     Indication: PROPHYLAXIS
     Dates: start: 20151021, end: 20151021

REACTIONS (5)
  - Cardiac failure [Fatal]
  - Brain stem haemorrhage [Fatal]
  - Coronary artery disease [Fatal]
  - Coma [Fatal]
  - Respiratory failure [Fatal]

NARRATIVE: CASE EVENT DATE: 20151021
